FAERS Safety Report 9258868 (Version 2)
Quarter: 2014Q2

REPORT INFORMATION
  Report Type: Spontaneous
  Country: US (occurrence: US)
  Receive Date: 20130426
  Receipt Date: 20140428
  Transmission Date: 20141212
  Serious: No
  Sender: FDA-Public Use
  Company Number: US-GLAXOSMITHKLINE-A1012296A

PATIENT
  Age: 49 Year
  Sex: Female
  Weight: 73.6 kg

DRUGS (1)
  1. NARATRIPTAN [Suspect]
     Indication: MIGRAINE
     Route: 048

REACTIONS (3)
  - Drug ineffective [Recovered/Resolved]
  - Palpitations [Recovered/Resolved]
  - Muscle tightness [Recovered/Resolved]
